FAERS Safety Report 18790926 (Version 4)
Quarter: 2023Q4

REPORT INFORMATION
  Report Type: Report from Study
  Country: ES (occurrence: ES)
  Receive Date: 20210126
  Receipt Date: 20231114
  Transmission Date: 20240109
  Serious: Yes (Death, Hospitalization, Other)
  Sender: FDA-Public Use
  Company Number: ES-EXELIXIS-XL18420036359

PATIENT

DRUGS (5)
  1. CABOZANTINIB [Suspect]
     Active Substance: CABOZANTINIB
     Indication: Pancreatic neuroendocrine tumour metastatic
     Dosage: 40 MG
     Route: 065
     Dates: start: 20201109, end: 20201228
  2. TECENTRIQ [Suspect]
     Active Substance: ATEZOLIZUMAB
     Indication: Pancreatic neuroendocrine tumour metastatic
     Dosage: 1200 MG
     Route: 065
     Dates: start: 20201109, end: 20201228
  3. OMEPRAZOLE [Concomitant]
     Active Substance: OMEPRAZOLE
     Dosage: UNK
  4. CREON [Concomitant]
     Active Substance: PANCRELIPASE AMYLASE\PANCRELIPASE LIPASE\PANCRELIPASE PROTEASE
     Dosage: UNK
  5. CODEINE [Concomitant]
     Active Substance: CODEINE
     Dosage: UNK

REACTIONS (5)
  - Hyperthyroidism [Recovered/Resolved]
  - Pancreatitis [Fatal]
  - Abdominal pain [Not Recovered/Not Resolved]
  - Abdominal pain [Recovered/Resolved with Sequelae]
  - Off label use [Unknown]

NARRATIVE: CASE EVENT DATE: 20201130
